FAERS Safety Report 9885964 (Version 3)
Quarter: 2014Q1

REPORT INFORMATION
  Report Type: Spontaneous
  Country: JP (occurrence: JP)
  Receive Date: 20140210
  Receipt Date: 20140226
  Transmission Date: 20141002
  Serious: Yes (Other)
  Sender: FDA-Public Use
  Company Number: JP-TEVA-454672ISR

PATIENT
  Age: 33 Year
  Sex: Male

DRUGS (4)
  1. ADEFURONIC,TAB,25MG [Suspect]
     Indication: TOOTH EXTRACTION
     Route: 048
     Dates: start: 20140102, end: 20140206
  2. ADEFURONIC,TAB,25MG [Suspect]
     Indication: PAIN
  3. AMOXICILLIN [Suspect]
     Indication: TOOTH EXTRACTION
     Dosage: 750 MILLIGRAM DAILY;
     Route: 048
     Dates: start: 20140102, end: 20140106
  4. AMOXICILLIN [Suspect]
     Indication: INFECTION PROPHYLAXIS

REACTIONS (2)
  - Hypothermia [Recovered/Resolved]
  - Chills [Recovered/Resolved]
